FAERS Safety Report 5822730-7 (Version None)
Quarter: 2008Q3

REPORT INFORMATION
  Report Type: 
  Country: None (occurrence: None)
  Receive Date: 20080725
  Receipt Date: 20071019
  Transmission Date: 20090109
  Serious: No
  Sender: FDA-Public Use
  Company Number: US-AMGEN-KDL249013

PATIENT
  Sex: Female
  Weight: 77.2 kg

DRUGS (4)
  1. PROCRIT [Suspect]
     Indication: ANAEMIA OF MALIGNANT DISEASE
     Dates: start: 20020101, end: 20070801
  2. ZOMETA [Concomitant]
  3. PREDNISONE TAB [Concomitant]
  4. ALKERAN [Concomitant]

REACTIONS (3)
  - ASTHENIA [None]
  - HAEMOGLOBIN DECREASED [None]
  - HEART RATE INCREASED [None]
